FAERS Safety Report 24386773 (Version 4)
Quarter: 2025Q3

REPORT INFORMATION
  Report Type: Spontaneous
  Country: US (occurrence: US)
  Receive Date: 20241002
  Receipt Date: 20250902
  Transmission Date: 20251021
  Serious: Yes (Disabling, Other)
  Sender: AMGEN
  Company Number: US-AMGEN-USASP2024190535

PATIENT
  Sex: Male
  Weight: 86 kg

DRUGS (41)
  1. TEPEZZA [Suspect]
     Active Substance: TEPROTUMUMAB-TRBW
     Indication: Graves^ disease
     Dosage: 820 MILLIGRAM, Q3WK (DOSE ONE) (10 MG/KG)
     Route: 040
     Dates: start: 20220318, end: 20220318
  2. TEPEZZA [Suspect]
     Active Substance: TEPROTUMUMAB-TRBW
     Indication: Endocrine ophthalmopathy
     Dosage: 1720 MILLIGRAM, Q3WK (DOSE 2) (20MG/KG)
     Route: 040
     Dates: start: 20220408, end: 20220408
  3. TEPEZZA [Suspect]
     Active Substance: TEPROTUMUMAB-TRBW
     Dosage: 1685 MILLIGRAM, Q3WK (DOSE 3) (20MG/KG)
     Route: 040
     Dates: start: 20220429, end: 20220429
  4. TEPEZZA [Suspect]
     Active Substance: TEPROTUMUMAB-TRBW
     Dosage: 1650 MILLIGRAM, Q3WK (DOSE FOUR) (20 MG/KG)
     Route: 040
     Dates: start: 20220520, end: 20220520
  5. TEPEZZA [Suspect]
     Active Substance: TEPROTUMUMAB-TRBW
     Dosage: 1645 MILLIGRAM, Q3WK (DOSE 5) (20 MG/KG)
     Route: 040
     Dates: start: 20220610, end: 20220610
  6. TEPEZZA [Suspect]
     Active Substance: TEPROTUMUMAB-TRBW
     Dosage: 1610 MILLIGRAM, Q3WK (DOSE 6) (20 MG/KG)
     Route: 040
     Dates: start: 20220701, end: 20220701
  7. TEPEZZA [Suspect]
     Active Substance: TEPROTUMUMAB-TRBW
     Dosage: 1620 MILLIGRAM, Q3WK (DOSE 7) (20 MG/KG)
     Route: 040
     Dates: start: 20220722, end: 20220722
  8. TEPEZZA [Suspect]
     Active Substance: TEPROTUMUMAB-TRBW
     Dosage: 1620 MILLIGRAM, Q3WK (DOSE 8) (LAST DOSE) (20 MG/KG)
     Route: 040
     Dates: start: 20220812, end: 20220812
  9. BENAZEPRIL [Concomitant]
     Active Substance: BENAZEPRIL HYDROCHLORIDE
     Route: 048
  10. GLYCOPYRROLATE [Concomitant]
     Active Substance: GLYCOPYRROLATE
     Route: 065
  11. LEVOCETIRIZINE [Concomitant]
     Active Substance: LEVOCETIRIZINE
     Route: 065
  12. HUMALOG [Concomitant]
     Active Substance: INSULIN LISPRO
     Route: 058
  13. LEVOTHYROXINE [Concomitant]
     Active Substance: LEVOTHYROXINE
     Route: 048
  14. LEVOTHYROXINE [Concomitant]
     Active Substance: LEVOTHYROXINE
     Route: 048
  15. NOVOLOG [Concomitant]
     Active Substance: INSULIN ASPART
  16. OMEPRAZOLE [Concomitant]
     Active Substance: OMEPRAZOLE
     Route: 065
  17. SIMVASTATIN [Concomitant]
     Active Substance: SIMVASTATIN
     Route: 065
  18. TRIAMTERENE [Concomitant]
     Active Substance: TRIAMTERENE
     Route: 065
  19. HYDROCHLOROTHIAZIDE [Concomitant]
     Active Substance: HYDROCHLOROTHIAZIDE
     Route: 065
  20. XARELTO [Concomitant]
     Active Substance: RIVAROXABAN
     Route: 065
  21. PANTOPRAZOLE [Concomitant]
     Active Substance: PANTOPRAZOLE
     Route: 048
  22. LEVOFLOXACIN [Concomitant]
     Active Substance: LEVOFLOXACIN
     Route: 065
  23. SODIUM CHLORIDE [Concomitant]
     Active Substance: SODIUM CHLORIDE
     Route: 065
  24. SODIUM CHLORIDE [Concomitant]
     Active Substance: SODIUM CHLORIDE
     Route: 065
  25. SODIUM CHLORIDE [Concomitant]
     Active Substance: SODIUM CHLORIDE
     Route: 065
  26. SODIUM CHLORIDE [Concomitant]
     Active Substance: SODIUM CHLORIDE
     Route: 065
  27. SODIUM CHLORIDE [Concomitant]
     Active Substance: SODIUM CHLORIDE
     Route: 065
  28. SODIUM CHLORIDE [Concomitant]
     Active Substance: SODIUM CHLORIDE
     Route: 065
  29. SODIUM CHLORIDE [Concomitant]
     Active Substance: SODIUM CHLORIDE
     Route: 065
  30. STERILE WATER [Concomitant]
     Active Substance: WATER
     Route: 065
  31. STERILE WATER [Concomitant]
     Active Substance: WATER
     Route: 065
  32. STERILE WATER [Concomitant]
     Active Substance: WATER
     Route: 065
  33. STERILE WATER [Concomitant]
     Active Substance: WATER
     Route: 065
  34. STERILE WATER [Concomitant]
     Active Substance: WATER
     Route: 065
  35. STERILE WATER [Concomitant]
     Active Substance: WATER
     Route: 065
  36. ROSUVASTATIN [Concomitant]
     Active Substance: ROSUVASTATIN
     Route: 048
  37. AMLODIPINE [Concomitant]
     Active Substance: AMLODIPINE BESYLATE
     Route: 048
  38. ASPIRIN [Concomitant]
     Active Substance: ASPIRIN
     Route: 048
  39. PROAIR HFA [Concomitant]
     Active Substance: ALBUTEROL SULFATE
     Dosage: UNK, Q6H (2 PUFFS)
  40. CALCITRIOL [Concomitant]
     Active Substance: CALCITRIOL
     Route: 065
  41. CAFFEINE [Concomitant]
     Active Substance: CAFFEINE
     Route: 065

REACTIONS (13)
  - Deafness neurosensory [Unknown]
  - Deafness permanent [Not Recovered/Not Resolved]
  - Condition aggravated [Unknown]
  - Cerumen impaction [Unknown]
  - Auditory disorder [Unknown]
  - Pain [Unknown]
  - Emotional distress [Unknown]
  - Anxiety [Unknown]
  - Impaired quality of life [Unknown]
  - Discomfort [Unknown]
  - Tinnitus [Not Recovered/Not Resolved]
  - Eustachian tube dysfunction [Unknown]
  - Product use complaint [Unknown]
